FAERS Safety Report 7348456-9 (Version None)
Quarter: 2011Q1

REPORT INFORMATION
  Report Type: 
  Country: None (occurrence: None)
  Receive Date: 20110313
  Receipt Date: 20110222
  Transmission Date: 20110831
  Serious: Yes (Other)
  Sender: FDA-Public Use
  Company Number: SL-B.I. PHARMACEUTICALS,INC./RIDGEFIELD-2011-DE-01301GD

PATIENT
  Sex: Male

DRUGS (5)
  1. ETHAMBUTOL HYDROCHLORIDE [Concomitant]
     Indication: PULMONARY TUBERCULOSIS
  2. ISONIAZID [Concomitant]
     Indication: PULMONARY TUBERCULOSIS
  3. TRIOMUNE [Suspect]
     Indication: HIV INFECTION
  4. PYRAZINAMIDE [Concomitant]
     Indication: PULMONARY TUBERCULOSIS
  5. RIFAMPIN [Concomitant]
     Indication: PULMONARY TUBERCULOSIS

REACTIONS (6)
  - VIRAL MUTATION IDENTIFIED [None]
  - KAPOSI'S SARCOMA [None]
  - MULTIPLE-DRUG RESISTANCE [None]
  - NAUSEA [None]
  - DRUG INEFFECTIVE [None]
  - WEIGHT DECREASED [None]
